FAERS Safety Report 9641587 (Version 2)
Quarter: 2013Q4

REPORT INFORMATION
  Report Type: Spontaneous
  Country: AU (occurrence: AU)
  Receive Date: 20131023
  Receipt Date: 20131118
  Transmission Date: 20140711
  Serious: Yes (Hospitalization, Other)
  Sender: FDA-Public Use
  Company Number: AU-ABBVIE-13P-008-1159707-00

PATIENT
  Sex: 0

DRUGS (2)
  1. LUCRIN DEPOT [Suspect]
     Indication: PRODUCT USED FOR UNKNOWN INDICATION
  2. LUCRIN DEPOT [Suspect]

REACTIONS (9)
  - Neoplasm malignant [Not Recovered/Not Resolved]
  - Coronary artery bypass [Unknown]
  - Cardiac pacemaker replacement [Unknown]
  - Cardiac disorder [Unknown]
  - Oedema peripheral [Recovering/Resolving]
  - Groin pain [Recovering/Resolving]
  - Stent placement [Unknown]
  - Knee arthroplasty [Unknown]
  - Pain [Not Recovered/Not Resolved]
